FAERS Safety Report 6980362-1 (Version None)
Quarter: 2010Q3

REPORT INFORMATION
  Report Type: 
  Country: None (occurrence: None)
  Receive Date: 20100914
  Receipt Date: 20100909
  Transmission Date: 20110219
  Serious: Yes (Other)
  Sender: FDA-Public Use
  Company Number: RU-ROCHE-726595

PATIENT
  Age: 1 Year
  Sex: Female
  Weight: 9 kg

DRUGS (1)
  1. ROCEPHIN [Suspect]
     Indication: PROPHYLAXIS
     Route: 042
     Dates: start: 20100825, end: 20100827

REACTIONS (3)
  - CHILLS [None]
  - LIVEDO RETICULARIS [None]
  - PYREXIA [None]
